FAERS Safety Report 19488545 (Version 4)
Quarter: 2022Q2

REPORT INFORMATION
  Report Type: Spontaneous
  Country: FR (occurrence: FR)
  Receive Date: 20210702
  Receipt Date: 20220608
  Transmission Date: 20220720
  Serious: Yes (Other)
  Sender: FDA-Public Use
  Company Number: FR-BRISTOL-MYERS SQUIBB COMPANY-BMS-2021-060781

PATIENT
  Age: 55 Year
  Sex: Male
  Weight: 70 kg

DRUGS (44)
  1. AZTREONAM [Suspect]
     Active Substance: AZTREONAM
     Indication: Product used for unknown indication
     Dosage: UNK
     Route: 065
     Dates: start: 20210423, end: 20210501
  2. AMIKACIN SULFATE [Suspect]
     Active Substance: AMIKACIN SULFATE
     Indication: Product used for unknown indication
     Dosage: UNK
     Route: 065
     Dates: start: 20210421
  3. AMIKACIN SULFATE [Suspect]
     Active Substance: AMIKACIN SULFATE
     Dosage: UNK
     Route: 065
     Dates: start: 20210504, end: 20210504
  4. AMIKACIN SULFATE [Suspect]
     Active Substance: AMIKACIN SULFATE
     Dosage: UNK
     Route: 065
     Dates: start: 20210514, end: 20210514
  5. MIDAZOLAM HYDROCHLORIDE [Suspect]
     Active Substance: MIDAZOLAM HYDROCHLORIDE
     Indication: Sedation
     Dosage: 50 MILLIGRAM
     Route: 042
     Dates: start: 20210407
  6. MIDAZOLAM HYDROCHLORIDE [Suspect]
     Active Substance: MIDAZOLAM HYDROCHLORIDE
     Indication: Seizure
  7. FUROSEMIDE [Suspect]
     Active Substance: FUROSEMIDE
     Indication: Product used for unknown indication
     Dosage: 4000 UIX2/J
     Route: 058
     Dates: start: 20210326, end: 20210430
  8. FUROSEMIDE [Suspect]
     Active Substance: FUROSEMIDE
     Dosage: UNK
     Route: 065
     Dates: start: 20210326, end: 20210430
  9. COLISTIMETHATE SODIUM [Suspect]
     Active Substance: COLISTIMETHATE SODIUM
     Indication: Product used for unknown indication
     Dosage: 1 DOSE
     Route: 065
     Dates: start: 20210507, end: 20210507
  10. HYDROCHLOROTHIAZIDE [Suspect]
     Active Substance: HYDROCHLOROTHIAZIDE
     Indication: Product used for unknown indication
     Dosage: UNK
     Route: 065
     Dates: start: 20210501, end: 20210504
  11. PROPOFOL [Suspect]
     Active Substance: PROPOFOL
     Indication: Product used for unknown indication
     Dosage: UNK
     Route: 065
     Dates: start: 20210407
  12. SUFENTANIL [Suspect]
     Active Substance: SUFENTANIL
     Indication: Sedation
     Route: 042
     Dates: start: 20210407, end: 20210416
  13. SUFENTANIL [Suspect]
     Active Substance: SUFENTANIL
     Dosage: UNK
     Route: 065
     Dates: start: 20210421, end: 20210423
  14. URAPIDIL [Suspect]
     Active Substance: URAPIDIL
     Indication: Product used for unknown indication
     Dosage: UNK
     Route: 065
     Dates: start: 20210418, end: 20210421
  15. MEROPENEM [Suspect]
     Active Substance: MEROPENEM
     Indication: Product used for unknown indication
     Dosage: UNK
     Route: 065
     Dates: start: 20210517
  16. MEROPENEM [Suspect]
     Active Substance: MEROPENEM
     Dosage: UNK
     Route: 065
     Dates: start: 20210404, end: 20210506
  17. MEROPENEM [Suspect]
     Active Substance: MEROPENEM
     Dosage: UNK
     Route: 065
     Dates: start: 20210513, end: 20210515
  18. METRONIDAZOLE [Suspect]
     Active Substance: METRONIDAZOLE
     Indication: Product used for unknown indication
     Dosage: 1 DF
     Route: 065
     Dates: start: 20210409, end: 20210414
  19. LANSOPRAZOLE [Suspect]
     Active Substance: LANSOPRAZOLE
     Indication: Product used for unknown indication
     Dosage: 30 MILLIGRAM, QD
     Route: 048
     Dates: start: 20210408
  20. BUMETANIDE [Suspect]
     Active Substance: BUMETANIDE
     Indication: Product used for unknown indication
     Dosage: UNK
     Route: 065
     Dates: start: 20210505
  21. IMIPENEM [Suspect]
     Active Substance: IMIPENEM
     Indication: Product used for unknown indication
     Dosage: UNK
     Route: 065
     Dates: start: 20210326
  22. IMIPENEM [Suspect]
     Active Substance: IMIPENEM
     Dosage: UNK
     Route: 065
     Dates: start: 20210505, end: 20210518
  23. ACYCLOVIR [Suspect]
     Active Substance: ACYCLOVIR
     Indication: Product used for unknown indication
     Dosage: UNK
     Route: 065
     Dates: start: 20210423, end: 20210430
  24. CAYSTON [Suspect]
     Active Substance: AZTREONAM
     Indication: Product used for unknown indication
     Dosage: INHALATION USE
     Route: 065
     Dates: start: 20190423
  25. INSULIN NOS [Suspect]
     Active Substance: INSULIN NOS
     Indication: Product used for unknown indication
     Dosage: UNK
     Route: 065
     Dates: start: 20210326
  26. HEPARIN SODIUM [Suspect]
     Active Substance: HEPARIN SODIUM
     Indication: Anticoagulant therapy
     Dosage: 4000 UI X 2 / J
     Route: 058
     Dates: start: 20210326
  27. COLISTIN [Suspect]
     Active Substance: COLISTIN
     Indication: Product used for unknown indication
     Dosage: SINGLE DOSE
     Route: 065
     Dates: start: 20210507, end: 20210507
  28. MIDAZOLAM [Suspect]
     Active Substance: MIDAZOLAM
     Indication: Sedation
     Dosage: 50 MILLIGRAM
     Route: 065
     Dates: start: 20210407
  29. PIPERACILLIN SODIUM\TAZOBACTAM SODIUM [Suspect]
     Active Substance: PIPERACILLIN SODIUM\TAZOBACTAM SODIUM
     Indication: Product used for unknown indication
     Dosage: UNK
     Route: 065
     Dates: start: 20210421, end: 20210423
  30. CIPROFLOXACIN [Suspect]
     Active Substance: CIPROFLOXACIN
     Indication: Product used for unknown indication
     Dosage: UNK
     Route: 065
     Dates: start: 20210502, end: 20210504
  31. CIPROFLOXACIN [Suspect]
     Active Substance: CIPROFLOXACIN
     Dosage: UNK
     Route: 065
     Dates: start: 20210508, end: 20210515
  32. ATRACURIUM [Suspect]
     Active Substance: ATRACURIUM
     Indication: Product used for unknown indication
     Dosage: UNK
     Route: 065
     Dates: start: 20210408, end: 20210430
  33. URAPIDIL [Suspect]
     Active Substance: URAPIDIL
     Indication: Product used for unknown indication
     Dosage: UNK
     Route: 065
     Dates: start: 20210418, end: 20210421
  34. BUMETANIDE [Suspect]
     Active Substance: BUMETANIDE
     Indication: Product used for unknown indication
     Dosage: UNK
     Route: 065
     Dates: start: 20210505
  35. PIPERACILLIN SODIUM\TAZOBACTAM SODIUM [Suspect]
     Active Substance: PIPERACILLIN SODIUM\TAZOBACTAM SODIUM
     Indication: Product used for unknown indication
     Route: 065
  36. AMLODIPINE BESYLATE [Concomitant]
     Active Substance: AMLODIPINE BESYLATE
     Indication: Product used for unknown indication
     Dosage: 5 MILLIGRAM, QD
     Route: 065
  37. MOVICOL [Concomitant]
     Active Substance: POLYETHYLENE GLYCOL 3350\POTASSIUM CHLORIDE\SODIUM BICARBONATE\SODIUM CHLORIDE
     Indication: Product used for unknown indication
  38. MOVICOL [Concomitant]
     Active Substance: POLYETHYLENE GLYCOL 3350\POTASSIUM CHLORIDE\SODIUM BICARBONATE\SODIUM CHLORIDE
     Dosage: UNK
     Route: 065
  39. HERBALS\KARAYA GUM [Concomitant]
     Active Substance: HERBALS\KARAYA GUM
     Route: 065
  40. HERBALS\KARAYA GUM [Concomitant]
     Active Substance: HERBALS\KARAYA GUM
     Indication: Product used for unknown indication
  41. METFORMIN HYDROCHLORIDE [Concomitant]
     Active Substance: METFORMIN HYDROCHLORIDE
     Indication: Diabetes mellitus
     Dosage: 850 MILLIGRAM, BID
     Route: 065
  42. METFORMIN HYDROCHLORIDE [Concomitant]
     Active Substance: METFORMIN HYDROCHLORIDE
     Dosage: 150 MILLIGRAM, BID
     Route: 065
  43. NORMACOL [STERCULIA URENS GUM] [Concomitant]
     Indication: Product used for unknown indication
     Dosage: UNK
     Route: 065
  44. AMLODIPINE BESYLATE [Concomitant]
     Active Substance: AMLODIPINE BESYLATE
     Indication: Product used for unknown indication
     Dosage: 5 MILLIGRAM, QD
     Route: 065

REACTIONS (6)
  - Hepatic cytolysis [Unknown]
  - Eosinophilia [Recovering/Resolving]
  - Thrombocytopenia [Recovered/Resolved]
  - Rash maculo-papular [Recovering/Resolving]
  - Condition aggravated [Recovered/Resolved]
  - Leukocytosis [Unknown]

NARRATIVE: CASE EVENT DATE: 20210101
